FAERS Safety Report 7119868-3 (Version None)
Quarter: 2010Q4

REPORT INFORMATION
  Report Type: 
  Country: None (occurrence: None)
  Receive Date: 20101123
  Receipt Date: 20100917
  Transmission Date: 20110411
  Serious: No
  Sender: FDA-Public Use
  Company Number: US-BRISTOL-MYERS SQUIBB COMPANY-15291891

PATIENT
  Sex: Female

DRUGS (2)
  1. ONGLYZA [Suspect]
  2. AMARIL D [Concomitant]

REACTIONS (1)
  - RASH [None]
